FAERS Safety Report 14023386 (Version 2)
Quarter: 2020Q2

REPORT INFORMATION
  Report Type: Report from Study
  Country: US (occurrence: US)
  Receive Date: 20170928
  Receipt Date: 20200625
  Transmission Date: 20200713
  Serious: Yes (Hospitalization, Other)
  Sender: FDA-Public Use
  Company Number: US-SA-2016SA207497

PATIENT
  Age: 26 Year
  Sex: Female

DRUGS (2)
  1. TERIFLUNOMIDE. [Suspect]
     Active Substance: TERIFLUNOMIDE
     Indication: MULTIPLE SCLEROSIS
     Dosage: 14 MG, QD
     Route: 048
     Dates: start: 20140914, end: 20190423
  2. OCREVUS [Suspect]
     Active Substance: OCRELIZUMAB
     Indication: DRUG INEFFECTIVE

REACTIONS (6)
  - Ectopic pregnancy [Unknown]
  - Infection [Recovered/Resolved]
  - Drug ineffective [Unknown]
  - Product dose omission [Unknown]
  - Depression [Not Recovered/Not Resolved]
  - Multiple sclerosis relapse [Unknown]

NARRATIVE: CASE EVENT DATE: 201906
